FAERS Safety Report 8936867 (Version 1)
Quarter: 2012Q4

REPORT INFORMATION
  Report Type: 
  Country: CO (occurrence: CO)
  Receive Date: 20121130
  Receipt Date: 20121130
  Transmission Date: 20130627
  Serious: Yes (Death, Hospitalization)
  Sender: FDA-Public Use
  Company Number: CO-UCBSA-072123

PATIENT
  Age: 84 Year
  Sex: Female

DRUGS (6)
  1. CIMZIA [Suspect]
     Indication: RHEUMATOID ARTHRITIS
     Route: 058
     Dates: start: 20110308, end: 20120922
  2. PREDNISOLONE [Concomitant]
     Dosage: DAILY DOSE: 5 MG
     Route: 048
  3. FOLIC ACID [Concomitant]
     Dosage: DAILY DOSE: 1 MG
  4. METHOTREXATE [Concomitant]
     Dosage: DAILY DOSE: 15 MG
     Route: 048
  5. CLOROQUINE [Concomitant]
     Dosage: DAILY DOSE: 150 MG
     Route: 048
  6. CALCIUM+VIT D [Concomitant]
     Dosage: 1 TAB

REACTIONS (2)
  - Death [Fatal]
  - Respiratory disorder [Unknown]
